FAERS Safety Report 5872706-9 (Version None)
Quarter: 2008Q3

REPORT INFORMATION
  Report Type: 
  Country: None (occurrence: None)
  Receive Date: 20080905
  Receipt Date: 20080828
  Transmission Date: 20090109
  Serious: Yes (Other)
  Sender: FDA-Public Use
  Company Number: US-PFIZER INC-2008072703

PATIENT
  Sex: Female
  Weight: 93.636 kg

DRUGS (4)
  1. LIPITOR [Suspect]
  2. ACYCLOVIR [Concomitant]
  3. PROCARDIA [Concomitant]
  4. VALTREX [Concomitant]

REACTIONS (2)
  - CORNEAL TRANSPLANT [None]
  - MYALGIA [None]
